FAERS Safety Report 12567402 (Version 3)
Quarter: 2017Q1

REPORT INFORMATION
  Report Type: Spontaneous
  Country: US (occurrence: US)
  Receive Date: 20160718
  Receipt Date: 20170109
  Transmission Date: 20170428
  Serious: Yes (Other)
  Sender: FDA-Public Use
  Company Number: US-ASTELLAS-2016US022225

PATIENT
  Sex: Female

DRUGS (1)
  1. MYRBETRIQ [Suspect]
     Active Substance: MIRABEGRON
     Indication: BLADDER DISORDER
     Route: 048

REACTIONS (6)
  - Diarrhoea [Recovering/Resolving]
  - Drug ineffective [Unknown]
  - Abdominal discomfort [Recovering/Resolving]
  - Ankle fracture [Recovered/Resolved]
  - Fall [Unknown]
  - Pollakiuria [Unknown]
